FAERS Safety Report 16549300 (Version 3)
Quarter: 2019Q3

REPORT INFORMATION
  Report Type: Spontaneous
  Country: JP (occurrence: JP)
  Receive Date: 20190709
  Receipt Date: 20190822
  Transmission Date: 20191004
  Serious: Yes (Death, Hospitalization, Other)
  Sender: FDA-Public Use
  Company Number: PHJP2019JP008506

PATIENT
  Age: 81 Year
  Sex: Female

DRUGS (6)
  1. LIPITOR [Concomitant]
     Active Substance: ATORVASTATIN CALCIUM
     Indication: HYPERLIPIDAEMIA
     Dosage: 10 MG, QD
     Route: 048
     Dates: start: 20041124
  2. DIOVAN [Suspect]
     Active Substance: VALSARTAN
     Indication: HYPERTENSION
     Dosage: 80 MG, QD
     Route: 048
     Dates: start: 19890304
  3. METGLUCO [Suspect]
     Active Substance: METFORMIN HYDROCHLORIDE
     Indication: DIABETES MELLITUS
     Dosage: 250 MG, TID
     Route: 048
  4. EQUA TAB [Suspect]
     Active Substance: VILDAGLIPTIN
     Indication: TYPE 2 DIABETES MELLITUS
     Dosage: 50 MG, BID
     Route: 048
     Dates: start: 1995
  5. WYPAX [Concomitant]
     Active Substance: LORAZEPAM
     Indication: ANXIETY DISORDER
     Dosage: 0.5 MG, BID
     Route: 048
  6. AMARYL [Concomitant]
     Active Substance: GLIMEPIRIDE
     Indication: DIABETES MELLITUS
     Dosage: 2 MG, QD
     Route: 048
     Dates: start: 19950516

REACTIONS (14)
  - Hyperventilation [Fatal]
  - Acute hepatic failure [Unknown]
  - Enterocolitis [Unknown]
  - Renal impairment [Unknown]
  - Physical deconditioning [Fatal]
  - Prolonged expiration [Fatal]
  - Diarrhoea [Fatal]
  - Dehydration [Unknown]
  - Cholelithiasis [Unknown]
  - Lactic acidosis [Fatal]
  - Altered state of consciousness [Fatal]
  - Nausea [Fatal]
  - Vomiting [Fatal]
  - Shock [Fatal]

NARRATIVE: CASE EVENT DATE: 20170925
